FAERS Safety Report 7002659-1 (Version None)
Quarter: 2010Q3

REPORT INFORMATION
  Report Type: 
  Country: None (occurrence: None)
  Receive Date: 20100917
  Receipt Date: 20100917
  Transmission Date: 20110219
  Serious: Yes (Hospitalization)
  Sender: FDA-Public Use
  Company Number: None

PATIENT
  Age: 67 Year
  Sex: Male
  Weight: 84 kg

DRUGS (2)
  1. FENTANYL [Suspect]
     Indication: SEDATION
     Dosage: 75 MCG ONCE IV
     Route: 042
     Dates: start: 20100914, end: 20100914
  2. MIDAZOLAM HCL [Suspect]
     Indication: SEDATION
     Dosage: 3 MG ONCE IV
     Route: 042
     Dates: start: 20100914, end: 20100914

REACTIONS (2)
  - HYPOTENSION [None]
  - UNRESPONSIVE TO STIMULI [None]
